FAERS Safety Report 11696563 (Version 1)
Quarter: 2015Q4

REPORT INFORMATION
  Report Type: Report from Study
  Country: US (occurrence: US)
  Receive Date: 20151104
  Receipt Date: 20151104
  Transmission Date: 20160304
  Serious: Yes (Hospitalization, Other)
  Sender: FDA-Public Use
  Company Number: US-GILEAD-2015-0178470

PATIENT
  Age: 15 Year
  Sex: Male

DRUGS (2)
  1. AMBRISENTAN [Suspect]
     Active Substance: AMBRISENTAN
     Indication: PRODUCT USED FOR UNKNOWN INDICATION
     Dosage: 5 MG, QD
     Route: 065
     Dates: start: 20141226
  2. REMODULIN [Concomitant]
     Active Substance: TREPROSTINIL

REACTIONS (3)
  - Pulmonary arterial hypertension [Unknown]
  - Off label use [Not Recovered/Not Resolved]
  - Localised infection [Unknown]

NARRATIVE: CASE EVENT DATE: 20141226
